FAERS Safety Report 4352185-3 (Version None)
Quarter: 2004Q2

REPORT INFORMATION
  Report Type: 
  Country: None (occurrence: None)
  Receive Date: 20040428
  Receipt Date: 20040406
  Transmission Date: 20050107
  Serious: Yes (Hospitalization, Other)
  Sender: FDA-Public Use
  Company Number: FR_020901460

PATIENT
  Age: 67 Year
  Sex: Male
  Weight: 75 kg

DRUGS (7)
  1. PERGOLIDE MESYLATE [Suspect]
     Indication: PARKINSON'S DISEASE
     Dosage: 3MG/DAY
     Dates: start: 20020128, end: 20020905
  2. SINEMET [Concomitant]
  3. SOPROL (BISOPROLOL FUMARATE) [Concomitant]
  4. NICARDIPINE HCL [Concomitant]
  5. ASPEGIC (ACETYLSALCYLATE LYSINE) [Concomitant]
  6. ALLOPURINOL TAB [Concomitant]
  7. FENOFIBRATE [Concomitant]

REACTIONS (2)
  - LUNG NEOPLASM MALIGNANT [None]
  - PERICARDITIS MALIGNANT [None]
